FAERS Safety Report 10864966 (Version 1)
Quarter: 2015Q1

REPORT INFORMATION
  Report Type: Report from Study
  Country: US (occurrence: US)
  Receive Date: 20150224
  Receipt Date: 20150224
  Transmission Date: 20150721
  Serious: No
  Sender: FDA-Public Use
  Company Number: US-MYLANLABS-2014S1002871

PATIENT
  Sex: Male
  Weight: 98.88 kg

DRUGS (3)
  1. AMNESTEEM [Suspect]
     Active Substance: ISOTRETINOIN
     Indication: OFF LABEL USE
  2. AMNESTEEM [Suspect]
     Active Substance: ISOTRETINOIN
     Dosage: UNK
     Dates: start: 201401, end: 201402
  3. AMNESTEEM [Suspect]
     Active Substance: ISOTRETINOIN
     Indication: RETINAL DETACHMENT

REACTIONS (1)
  - Aggression [Recovering/Resolving]

NARRATIVE: CASE EVENT DATE: 2014
